FAERS Safety Report 4705729-3 (Version None)
Quarter: 2005Q2

REPORT INFORMATION
  Report Type: 
  Country: None (occurrence: None)
  Receive Date: 20050629
  Receipt Date: 20050617
  Transmission Date: 20051028
  Serious: Yes (Other)
  Sender: FDA-Public Use
  Company Number: 2005-BP-10641RO

PATIENT
  Age: 37 Year
  Sex: Female

DRUGS (4)
  1. CYCLOPHOSPHAMIDE [Suspect]
     Indication: ERYTHEMA NODOSUM
     Dosage: 500 MG IV ON DAY 2 Q28D, IV
     Route: 042
  2. DEXAMETHASONE [Suspect]
     Indication: ERYTHEMA NODOSUM
     Dosage: 100 MG IV OVER 2 H DAYS 1-3 Q28D, IV
     Route: 042
  3. THALIDOMIDE (THALIDOMIDE) [Suspect]
     Indication: ERYTHEMA NODOSUM
     Dosage: 100 MG TID
  4. PREDNISONE [Concomitant]

REACTIONS (2)
  - DEEP VEIN THROMBOSIS [None]
  - DRUG EFFECT DECREASED [None]
